FAERS Safety Report 21704788 (Version 2)
Quarter: 2023Q1

REPORT INFORMATION
  Report Type: Spontaneous
  Country: DE (occurrence: DE)
  Receive Date: 20221209
  Receipt Date: 20230307
  Transmission Date: 20230418
  Serious: Yes (Other)
  Sender: FDA-Public Use
  Company Number: DE-BRISTOL-MYERS SQUIBB COMPANY-2022-148036

PATIENT
  Age: 41 Year
  Sex: Male

DRUGS (2)
  1. NIVOLUMAB [Suspect]
     Active Substance: NIVOLUMAB
     Indication: Malignant melanoma
     Dosage: 2 CYCLES
     Dates: start: 202112, end: 202201
  2. IPILIMUMAB [Suspect]
     Active Substance: IPILIMUMAB
     Indication: Malignant melanoma
     Dosage: 2 CYCLES
     Dates: start: 202112, end: 202201

REACTIONS (4)
  - Seizure [Unknown]
  - Metastases to central nervous system [Unknown]
  - Anaemia [Unknown]
  - Metastases to spine [Unknown]

NARRATIVE: CASE EVENT DATE: 20220101
